FAERS Safety Report 6477386-X (Version None)
Quarter: 2009Q4

REPORT INFORMATION
  Report Type: 
  Country: None (occurrence: None)
  Receive Date: 20091207
  Receipt Date: 20091026
  Transmission Date: 20100525
  Serious: Yes (Hospitalization)
  Sender: FDA-Public Use
  Company Number: US-AMGEN-US378250

PATIENT
  Sex: Female

DRUGS (14)
  1. ENBREL [Suspect]
     Indication: PSORIASIS
     Dates: start: 20070119, end: 20070728
  2. VITAMIN TAB [Concomitant]
     Route: 048
     Dates: start: 20070420, end: 20070728
  3. CAFFEINE [Concomitant]
     Route: 048
     Dates: start: 20070119, end: 20070413
  4. ALCOHOL [Concomitant]
     Route: 048
     Dates: start: 20070228, end: 20070228
  5. PROZAC [Concomitant]
     Route: 048
     Dates: start: 20070407, end: 20070728
  6. CELEXA [Concomitant]
     Route: 048
     Dates: start: 20070307, end: 20070312
  7. GEODON [Concomitant]
     Route: 048
     Dates: start: 20070301, end: 20070308
  8. ABILIFY [Concomitant]
     Route: 048
     Dates: start: 20070309, end: 20070316
  9. CLONAZEPAM [Concomitant]
     Route: 048
     Dates: start: 20070307, end: 20070417
  10. VICODIN [Concomitant]
     Route: 048
     Dates: start: 20070119, end: 20070413
  11. PERCOCET [Concomitant]
     Route: 048
     Dates: start: 20070119, end: 20070413
  12. ROZEREM [Concomitant]
     Route: 048
     Dates: start: 20070215, end: 20070307
  13. BENADRYL [Concomitant]
     Route: 048
  14. TYLENOL (CAPLET) [Concomitant]
     Route: 048
     Dates: start: 20070413, end: 20070503

REACTIONS (2)
  - PREMATURE LABOUR [None]
  - PREMATURE RUPTURE OF MEMBRANES [None]
